FAERS Safety Report 4806101-8 (Version None)
Quarter: 2005Q4

REPORT INFORMATION
  Report Type: 
  Country: None (occurrence: None)
  Receive Date: 20051021
  Receipt Date: 20051004
  Transmission Date: 20060501
  Serious: Yes (Hospitalization)
  Sender: FDA-Public Use
  Company Number: FR-ROCHE-419686

PATIENT
  Age: 38 Year
  Sex: Female

DRUGS (1)
  1. LARIAM [Suspect]
     Indication: MALARIA
     Dosage: DOSING REGIMEN REPORTED AS 3 TABLETS, 2 TABLETS THEN 1 TABLET AT AN 8 HOUR INTERVAL.
     Route: 048
     Dates: start: 20050621, end: 20050622

REACTIONS (4)
  - HEPATIC ENZYME INCREASED [None]
  - LEUKOPENIA [None]
  - NEUTROPENIA [None]
  - THROMBOCYTOPENIA [None]
